FAERS Safety Report 6311814-5 (Version None)
Quarter: 2009Q3

REPORT INFORMATION
  Report Type: 
  Country: None (occurrence: None)
  Receive Date: 20090813
  Receipt Date: 20090813
  Transmission Date: 20100115
  Serious: Yes (Life-Threatening, Other)
  Sender: FDA-Public Use
  Company Number: None

PATIENT
  Sex: Female
  Weight: 81.6475 kg

DRUGS (2)
  1. METHAZOLAMIDE [Suspect]
     Indication: GLAUCOMA
     Dosage: 50 MG TWICE A DAY ORAL
     Route: 048
     Dates: start: 20090723, end: 20090727
  2. BRIMONIDINE TARTRATE [Suspect]
     Indication: GLAUCOMA
     Dosage: DROPS 2% TWICE A DAY OPTIC USED FOR MONTHS BEFORE PROBLEM
     Dates: start: 20090721, end: 20090727

REACTIONS (19)
  - ABDOMINAL PAIN UPPER [None]
  - ALTERED VISUAL DEPTH PERCEPTION [None]
  - CHEST PAIN [None]
  - CONFUSIONAL STATE [None]
  - DECREASED APPETITE [None]
  - EYE HAEMORRHAGE [None]
  - EYE IRRITATION [None]
  - FEAR [None]
  - GAIT DISTURBANCE [None]
  - HEAD INJURY [None]
  - HEADACHE [None]
  - NERVOUS SYSTEM DISORDER [None]
  - OEDEMA PERIPHERAL [None]
  - PRODUCT SUBSTITUTION ISSUE [None]
  - PRURITUS [None]
  - SCLERAL DISCOLOURATION [None]
  - SLUGGISHNESS [None]
  - THROAT TIGHTNESS [None]
  - TREMOR [None]
